FAERS Safety Report 25611194 (Version 1)
Quarter: 2025Q3

REPORT INFORMATION
  Report Type: Spontaneous
  Country: US (occurrence: None)
  Receive Date: 20250725
  Receipt Date: 20250725
  Transmission Date: 20251021
  Serious: Yes (Hospitalization)
  Sender: FDA-CTU
  Company Number: None

PATIENT
  Age: 82 Year
  Sex: Female

DRUGS (7)
  1. SKYRIZI [Suspect]
     Active Substance: RISANKIZUMAB-RZAA
     Indication: Psoriasis
     Route: 058
     Dates: start: 20250213
  2. OMEPRAZOLE [Concomitant]
     Active Substance: OMEPRAZOLE
  3. ATORVASTATIN [Concomitant]
     Active Substance: ATORVASTATIN
  4. GABAPENTIN [Concomitant]
     Active Substance: GABAPENTIN
  5. POTASSIUM CHLORIDE [Concomitant]
     Active Substance: POTASSIUM CHLORIDE
  6. COLCHICINE [Concomitant]
     Active Substance: COLCHICINE
  7. DULOXETINE [Concomitant]
     Active Substance: DULOXETINE

REACTIONS (2)
  - Blood potassium decreased [None]
  - Dehydration [None]

NARRATIVE: CASE EVENT DATE: 20250616
